FAERS Safety Report 7874148-3 (Version None)
Quarter: 2011Q4

REPORT INFORMATION
  Report Type: 
  Country: None (occurrence: None)
  Receive Date: 20111017
  Receipt Date: 20101123
  Transmission Date: 20120403
  Serious: Yes (Hospitalization)
  Sender: FDA-Public Use
  Company Number: 2010S1000384(0)

PATIENT
  Sex: Male

DRUGS (4)
  1. NORVASC [Concomitant]
  2. ATENOLOL [Concomitant]
  3. DARVOCET-N 100 [Suspect]
     Indication: BACK PAIN
     Dosage: AS REQUIRED, ORAL
     Dates: start: 19900101, end: 20101120
  4. LIPITOR [Concomitant]

REACTIONS (2)
  - ARRHYTHMIA [None]
  - CARDIAC DISORDER [None]
